FAERS Safety Report 21471617 (Version 1)
Quarter: 2022Q4

REPORT INFORMATION
  Report Type: Report from Study
  Country: US (occurrence: US)
  Receive Date: 20221018
  Receipt Date: 20221018
  Transmission Date: 20230112
  Serious: No
  Sender: FDA-Public Use
  Company Number: US-ABBVIE-4157158

PATIENT
  Sex: Female

DRUGS (2)
  1. SKYRIZI [Suspect]
     Active Substance: RISANKIZUMAB-RZAA
     Indication: Psoriasis
     Dosage: 150 MG/ML INJECT 1 PEN SUBCUTANEOUSLY AT WEEK 0
     Route: 058
     Dates: start: 20220822, end: 20220822
  2. SKYRIZI [Suspect]
     Active Substance: RISANKIZUMAB-RZAA
     Dosage: 150 MG/ML INJECT 1 PEN SUBCUTANEOUSLY AT WEEK 4
     Route: 058
     Dates: start: 202209

REACTIONS (4)
  - Burning sensation [Unknown]
  - Pruritus [Unknown]
  - Skin plaque [Not Recovered/Not Resolved]
  - Skin exfoliation [Not Recovered/Not Resolved]
